FAERS Safety Report 8225884-0 (Version None)
Quarter: 2012Q1

REPORT INFORMATION
  Report Type: 
  Country: None (occurrence: None)
  Receive Date: 20120321
  Receipt Date: 20111208
  Transmission Date: 20120608
  Serious: Yes (Life-Threatening, Hospitalization)
  Sender: FDA-Public Use
  Company Number: FR-ROCHE-802615

PATIENT
  Sex: Male
  Weight: 60 kg

DRUGS (1)
  1. VEMURAFENIB [Suspect]
     Indication: METASTATIC MALIGNANT MELANOMA
     Route: 065
     Dates: start: 20110720, end: 20110909

REACTIONS (4)
  - BOWEN'S DISEASE [None]
  - SQUAMOUS CELL CARCINOMA OF SKIN [None]
  - ACTINIC KERATOSIS [None]
  - NEOPLASM PROGRESSION [None]
